FAERS Safety Report 11036682 (Version 1)
Quarter: 2015Q2

REPORT INFORMATION
  Report Type: Spontaneous
  Country: US (occurrence: US)
  Receive Date: 20150416
  Receipt Date: 20150416
  Transmission Date: 20150821
  Serious: No
  Sender: FDA-Public Use
  Company Number: US-AMGEN-USASP2015034632

PATIENT
  Age: 50 Year
  Sex: Male

DRUGS (1)
  1. ENBREL [Suspect]
     Active Substance: ETANERCEPT
     Indication: PSORIATIC ARTHROPATHY
     Dosage: UNK UNK, QWK
     Route: 065
     Dates: start: 20141027

REACTIONS (4)
  - Arthropathy [Not Recovered/Not Resolved]
  - Joint lock [Not Recovered/Not Resolved]
  - Joint crepitation [Not Recovered/Not Resolved]
  - Arthralgia [Not Recovered/Not Resolved]
